FAERS Safety Report 8322826-4 (Version None)
Quarter: 2012Q2

REPORT INFORMATION
  Report Type: 
  Country: None (occurrence: None)
  Receive Date: 20120430
  Receipt Date: 20120423
  Transmission Date: 20120825
  Serious: Yes (Other)
  Sender: FDA-Public Use
  Company Number: PHHY2012IT034350

PATIENT
  Age: 79 Year
  Sex: Male

DRUGS (3)
  1. TICLOPIDINE HCL [Suspect]
     Indication: PROPHYLAXIS
     Dosage: 250 MG, QD
     Route: 048
  2. TICLOPIDINE HCL [Suspect]
     Indication: ALTERED STATE OF CONSCIOUSNESS
  3. ACE INHIBITORS [Concomitant]
     Indication: HYPERTENSION
     Dosage: UNK UKN, UNK

REACTIONS (9)
  - RASH ERYTHEMATOUS [None]
  - GENERAL PHYSICAL HEALTH DETERIORATION [None]
  - BODY TEMPERATURE INCREASED [None]
  - BRONCHOPULMONARY ASPERGILLOSIS [None]
  - MUCOSAL INFLAMMATION [None]
  - BLOOD BLISTER [None]
  - RENAL FAILURE ACUTE [None]
  - TOXIC EPIDERMAL NECROLYSIS [None]
  - LUNG INFECTION PSEUDOMONAL [None]
